FAERS Safety Report 15998185 (Version 1)
Quarter: 2019Q1

REPORT INFORMATION
  Report Type: Spontaneous
  Country: FR (occurrence: FR)
  Receive Date: 20190223
  Receipt Date: 20190223
  Transmission Date: 20190418
  Serious: Yes (Other)
  Sender: FDA-Public Use
  Company Number: FR-ACCORD-108515

PATIENT
  Age: 82 Year
  Sex: Female
  Weight: 74 kg

DRUGS (11)
  1. SPIRONOLACTONE. [Suspect]
     Active Substance: SPIRONOLACTONE
     Indication: HYPERTENSION
     Route: 048
     Dates: start: 20180515, end: 20180627
  2. DIGOXINE NATIVELLE [Concomitant]
     Active Substance: DIGOXIN
  3. CALCIPARINE [Suspect]
     Active Substance: HEPARIN CALCIUM
     Indication: THROMBOSIS PROPHYLAXIS
     Dosage: STRENGTH: 5000 UI / 0.2 ML
     Route: 058
     Dates: start: 201805, end: 20180627
  4. PARACETAMOL [Concomitant]
     Active Substance: ACETAMINOPHEN
  5. SERESTA [Suspect]
     Active Substance: OXAZEPAM
     Indication: HALLUCINATION
     Dosage: STRENGTH:  10 MG, TABLET
     Route: 048
     Dates: start: 20180531, end: 20180627
  6. VENLAFAXINE/VENLAFAXINE HYDROCHLORIDE [Concomitant]
  7. AZOPT [Concomitant]
     Active Substance: BRINZOLAMIDE
  8. DIFFU K [Concomitant]
     Active Substance: POTASSIUM CHLORIDE
  9. CLAMOXYL (AMOXICILLIN) [Suspect]
     Active Substance: AMOXICILLIN
     Indication: INTERVERTEBRAL DISCITIS
     Dosage: STRENGTH: 1 G
     Route: 048
     Dates: start: 20180514, end: 20180627
  10. FUROSEMIDE/FUROSEMIDE SODIUM/FUROSEMIDE XANTINOL [Concomitant]
  11. BISOPROLOL [Concomitant]
     Active Substance: BISOPROLOL

REACTIONS (1)
  - Neutropenia [Recovered/Resolved]

NARRATIVE: CASE EVENT DATE: 20180627
